FAERS Safety Report 7797498-8 (Version None)
Quarter: 2011Q4

REPORT INFORMATION
  Report Type: 
  Country: None (occurrence: None)
  Receive Date: 20111005
  Receipt Date: 20110928
  Transmission Date: 20120403
  Serious: Yes (Death, Hospitalization)
  Sender: FDA-Public Use
  Company Number: ES-BAXTER-2011BH029993

PATIENT
  Age: 67 Year
  Sex: Male

DRUGS (6)
  1. FEIBA [Suspect]
     Indication: ACQUIRED HAEMOPHILIA
     Route: 065
  2. FEIBA [Suspect]
     Indication: RECTAL HAEMORRHAGE
     Route: 065
  3. OCTANATE [Concomitant]
     Indication: ACQUIRED HAEMOPHILIA
     Route: 065
  4. FEIBA [Suspect]
     Indication: HAEMOSTASIS
     Route: 065
  5. ANTI-CD20 [Concomitant]
     Indication: PRODUCT USED FOR UNKNOWN INDICATION
     Route: 065
  6. NOVOSEVEN [Concomitant]
     Indication: ACQUIRED HAEMOPHILIA
     Route: 065

REACTIONS (2)
  - PULMONARY SEPSIS [None]
  - PNEUMONIA [None]
